FAERS Safety Report 9355478 (Version 1)
Quarter: 2013Q2

REPORT INFORMATION
  Report Type: Spontaneous
  Country: US (occurrence: US)
  Receive Date: 20130619
  Receipt Date: 20130619
  Transmission Date: 20140414
  Serious: No
  Sender: FDA-Public Use
  Company Number: US-MYLANLABS-2012S1012671

PATIENT
  Age: 58 Year
  Sex: Male

DRUGS (1)
  1. CIMETIDINE [Suspect]
     Route: 048
     Dates: start: 201206

REACTIONS (1)
  - Faeces discoloured [Not Recovered/Not Resolved]
